FAERS Safety Report 8010411-3 (Version None)
Quarter: 2011Q4

REPORT INFORMATION
  Report Type: 
  Country: None (occurrence: None)
  Receive Date: 20111222
  Receipt Date: 20111214
  Transmission Date: 20120403
  Serious: Yes (Death)
  Sender: FDA-Public Use
  Company Number: ADR-2011-11399

PATIENT
  Age: 54 Year
  Sex: Female

DRUGS (6)
  1. BACLOFEN [Suspect]
     Indication: PAIN
     Dosage: 105.93 MCG, DAILY, INTR.
     Route: 037
  2. BACLOFEN [Suspect]
     Indication: GASTROINTESTINAL DISORDER
     Dosage: 105.93 MCG, DAILY, INTR.
     Route: 037
  3. CLONIDINE [Concomitant]
  4. BUPIVACAINE HCL [Concomitant]
  5. DROPERIDOL [Concomitant]
  6. DILAUDID [Concomitant]

REACTIONS (1)
  - COLON CANCER [None]
